FAERS Safety Report 14670017 (Version 4)
Quarter: 2019Q3

REPORT INFORMATION
  Report Type: Spontaneous
  Country: US (occurrence: US)
  Receive Date: 20180322
  Receipt Date: 20190815
  Transmission Date: 20191004
  Serious: No
  Sender: FDA-Public Use
  Company Number: US-PFIZER INC-2018093509

PATIENT
  Age: 66 Year
  Sex: Female
  Weight: 71.2 kg

DRUGS (6)
  1. IBRANCE [Suspect]
     Active Substance: PALBOCICLIB
     Indication: BREAST CANCER STAGE IV
     Dosage: 125 MG, CYCLIC (FOR 21 DAYS OFF 7 DAYS)
     Route: 048
     Dates: start: 201708
  2. VALSARTAN HYDROCHLOROTHIAZIDE KRKA [Concomitant]
     Active Substance: HYDROCHLOROTHIAZIDE\VALSARTAN
     Indication: BLOOD PRESSURE ABNORMAL
     Dosage: UNK, DAILY, (VALSARTAN: 160MG)/(HYDROCHLOROTHIAZID: 12.5MG)
  3. IBRANCE [Suspect]
     Active Substance: PALBOCICLIB
     Dosage: 125 MG, CYCLIC (2 WEEKS OFF)
     Route: 048
  4. SIMVASTATIN. [Concomitant]
     Active Substance: SIMVASTATIN
     Indication: BLOOD CHOLESTEROL ABNORMAL
     Dosage: 40 MG, DAILY
  5. FASLODEX [Concomitant]
     Active Substance: FULVESTRANT
     Dosage: 50 MG, UNK
  6. IBRANCE [Suspect]
     Active Substance: PALBOCICLIB
     Dosage: 100 MG, CYCLIC (2 WEEKS OFF)
     Route: 048
     Dates: start: 20180306, end: 20180327

REACTIONS (6)
  - Haematocrit decreased [Unknown]
  - Haemoglobin decreased [Unknown]
  - Liver disorder [Unknown]
  - Disturbance in attention [Unknown]
  - Fatigue [Not Recovered/Not Resolved]
  - Full blood count decreased [Not Recovered/Not Resolved]

NARRATIVE: CASE EVENT DATE: 2017
